FAERS Safety Report 17192959 (Version 3)
Quarter: 2020Q1

REPORT INFORMATION
  Report Type: Spontaneous
  Country: US (occurrence: US)
  Receive Date: 20191223
  Receipt Date: 20200211
  Transmission Date: 20200409
  Serious: No
  Sender: FDA-Public Use
  Company Number: US-SA-2019SA345018

PATIENT
  Age: 6 Year
  Sex: Female
  Weight: 24.3 kg

DRUGS (4)
  1. TYLENOL [Concomitant]
     Active Substance: ACETAMINOPHEN
     Indication: PREMEDICATION
     Dosage: 3200 MG, 1X
     Route: 048
  2. CEREZYME [Suspect]
     Active Substance: IMIGLUCERASE
     Dosage: 1600 UNITS, ONE TIME ONLY
     Route: 041
     Dates: start: 20191205, end: 20191205
  3. CEREZYME [Suspect]
     Active Substance: IMIGLUCERASE
     Dosage: 1400 UNITS, ONE TIME ONLY
     Route: 041
     Dates: start: 20191219, end: 20191219
  4. BENADRYL [Concomitant]
     Active Substance: DIPHENHYDRAMINE HYDROCHLORIDE
     Indication: PREMEDICATION
     Dosage: 25 MG, UNK
     Route: 048

REACTIONS (7)
  - Dysphonia [Unknown]
  - Urticaria [Recovered/Resolved]
  - Pruritus [Unknown]
  - Skin discolouration [Recovered/Resolved]
  - Cough [Recovered/Resolved]
  - Dyspnoea [Recovered/Resolved]
  - Erythema [Recovering/Resolving]

NARRATIVE: CASE EVENT DATE: 20191205
